FAERS Safety Report 23255927 (Version 2)
Quarter: 2023Q4

REPORT INFORMATION
  Report Type: Report from Study
  Country: BE (occurrence: BE)
  Receive Date: 20231204
  Receipt Date: 20231214
  Transmission Date: 20240109
  Serious: Yes (Hospitalization)
  Sender: FDA-Public Use
  Company Number: BE-JNJFOC-20230805051

PATIENT
  Age: 8 Decade
  Sex: Male
  Weight: 83 kg

DRUGS (13)
  1. MACITENTAN [Suspect]
     Active Substance: MACITENTAN
     Indication: Pulmonary arterial hypertension
     Route: 048
     Dates: start: 20221103
  2. EPOPROSTENOL SODIUM [Suspect]
     Active Substance: EPOPROSTENOL SODIUM
     Indication: Pulmonary arterial hypertension
     Route: 042
     Dates: start: 20221028, end: 20221102
  3. EPOPROSTENOL SODIUM [Suspect]
     Active Substance: EPOPROSTENOL SODIUM
     Route: 042
     Dates: start: 20221102, end: 20221109
  4. EPOPROSTENOL SODIUM [Suspect]
     Active Substance: EPOPROSTENOL SODIUM
     Route: 042
     Dates: start: 20221109, end: 20221212
  5. EPOPROSTENOL SODIUM [Suspect]
     Active Substance: EPOPROSTENOL SODIUM
     Route: 042
     Dates: start: 20221212, end: 20221227
  6. EPOPROSTENOL SODIUM [Suspect]
     Active Substance: EPOPROSTENOL SODIUM
     Route: 042
     Dates: start: 20221227
  7. EPOPROSTENOL SODIUM [Suspect]
     Active Substance: EPOPROSTENOL SODIUM
     Route: 042
     Dates: start: 20221114
  8. EPOPROSTENOL SODIUM [Suspect]
     Active Substance: EPOPROSTENOL SODIUM
     Route: 042
     Dates: start: 20231010, end: 20231016
  9. EPOPROSTENOL SODIUM [Suspect]
     Active Substance: EPOPROSTENOL SODIUM
     Route: 042
     Dates: start: 20231016, end: 20231024
  10. EPOPROSTENOL SODIUM [Suspect]
     Active Substance: EPOPROSTENOL SODIUM
     Route: 042
     Dates: start: 20231024, end: 20231113
  11. EPOPROSTENOL SODIUM [Suspect]
     Active Substance: EPOPROSTENOL SODIUM
     Route: 042
     Dates: start: 20231113, end: 20231120
  12. TADALAFIL [Concomitant]
     Active Substance: TADALAFIL
     Indication: Pulmonary arterial hypertension
     Route: 048
     Dates: start: 20221129, end: 20230102
  13. TADALAFIL [Concomitant]
     Active Substance: TADALAFIL
     Route: 048
     Dates: start: 20230102

REACTIONS (4)
  - Device occlusion [Recovered/Resolved]
  - Catheterisation cardiac [Recovered/Resolved with Sequelae]
  - Respiratory syncytial virus infection [Recovered/Resolved]
  - Underdose [Unknown]

NARRATIVE: CASE EVENT DATE: 20230205
